FAERS Safety Report 7265770-6 (Version None)
Quarter: 2011Q1

REPORT INFORMATION
  Report Type: 
  Country: None (occurrence: None)
  Receive Date: 20110131
  Receipt Date: 20110129
  Transmission Date: 20110831
  Serious: Yes (Hospitalization)
  Sender: FDA-Public Use
  Company Number: JP-PFIZER INC-2009222034

PATIENT
  Age: 67 Year
  Sex: Male
  Weight: 57 kg

DRUGS (21)
  1. FLUOROURACIL [Suspect]
     Indication: COLORECTAL CANCER
     Dosage: 475 MG, CYCLIC, EVERY 2 WEEKS
     Route: 040
     Dates: start: 20090501, end: 20090522
  2. BUFORMIN HYDROCHLORIDE [Concomitant]
     Dosage: UNK
     Route: 048
  3. LOPERAMIDE HYDROCHLORIDE [Concomitant]
     Dosage: UNK
     Route: 048
     Dates: start: 20090501, end: 20090524
  4. TRIAMCINOLONE ACETONIDE [Concomitant]
     Dosage: UNK
     Route: 061
     Dates: start: 20090513, end: 20090614
  5. HYDROCORTISONE [Concomitant]
     Dosage: UNK
     Route: 061
     Dates: start: 20090513, end: 20090519
  6. REBAMIPIDE [Concomitant]
     Dosage: UNK
     Route: 048
     Dates: start: 20090513, end: 20090516
  7. LANSOPRAZOLE [Concomitant]
     Dosage: UNK
     Route: 048
     Dates: start: 20090529
  8. FLUOROURACIL [Suspect]
     Dosage: 3200 MG, CYCLIC, EVERY 2 WEEKS
     Route: 041
     Dates: start: 20090501, end: 20090524
  9. IRINOTECAN HCL [Suspect]
     Indication: COLORECTAL CANCER
     Dosage: 240 MG, CYCLIC, EVERY 2 WEEKS
     Route: 042
     Dates: start: 20090501, end: 20090522
  10. SODIUM BICARBONATE [Concomitant]
     Dosage: UNK
     Route: 048
     Dates: start: 20090522, end: 20090525
  11. DEXAMETHASONE SODIUM PHOSPHATE [Concomitant]
     Dosage: UNK
     Route: 042
     Dates: start: 20090522, end: 20090522
  12. CEFCAPENE PIVOXIL HYDROCHLORIDE [Concomitant]
     Dosage: UNK
     Route: 048
     Dates: start: 20090513, end: 20090516
  13. LENOGRASTIM [Concomitant]
     Dosage: UNK
     Route: 058
     Dates: start: 20090513, end: 20090531
  14. SUNITINIB MALATE [Suspect]
     Indication: COLORECTAL CANCER
     Dosage: 25 MG, 1X/DAY
     Route: 048
     Dates: start: 20090501, end: 20090528
  15. FOLINIC ACID [Suspect]
     Indication: COLORECTAL CANCER
     Dosage: 325 MG, CYCLIC, EVERY 2 WEEKS
     Route: 042
     Dates: start: 20090501, end: 20090522
  16. URSODEOXYCHOLIC ACID [Concomitant]
     Dosage: UNK
     Route: 048
     Dates: start: 20090522, end: 20090525
  17. GRANISETRON HYDROCHLORIDE [Concomitant]
     Dosage: UNK
     Route: 042
     Dates: start: 20090522, end: 20090522
  18. SILODOSIN [Concomitant]
     Dosage: UNK
     Route: 048
  19. CANDESARTAN CILEXETIL [Concomitant]
     Dosage: UNK
     Route: 048
  20. GLIMEPIRIDE [Concomitant]
     Dosage: UNK
     Route: 048
  21. INSULIN HUMAN [Concomitant]
     Dosage: UNK
     Route: 042
     Dates: start: 20090529, end: 20090529

REACTIONS (1)
  - CEREBRAL INFARCTION [None]
